FAERS Safety Report 11060045 (Version 1)
Quarter: 2015Q2

REPORT INFORMATION
  Report Type: Spontaneous
  Country: US (occurrence: None)
  Receive Date: 20150422
  Receipt Date: 20150422
  Transmission Date: 20150821
  Serious: Yes (Hospitalization, Other)
  Sender: FDA-Public Use
  Company Number: ADR-2015-00754

PATIENT
  Age: 29 Year
  Sex: Male

DRUGS (3)
  1. BACLOFEN ORAL [Suspect]
     Active Substance: BACLOFEN
  2. LIORESAL [Suspect]
     Active Substance: BACLOFEN
     Indication: MUSCLE SPASTICITY
  3. ANTIBIOTICS [Suspect]
     Active Substance: UNSPECIFIED INGREDIENT

REACTIONS (4)
  - Medical device complication [None]
  - Ileus [None]
  - Implant site necrosis [None]
  - Intestinal obstruction [None]
